FAERS Safety Report 5109861-4 (Version None)
Quarter: 2006Q3

REPORT INFORMATION
  Report Type: 
  Country: None (occurrence: None)
  Receive Date: 20060918
  Receipt Date: 20060918
  Transmission Date: 20061208
  Serious: Yes (Hospitalization, Disabling, Other)
  Sender: FDA-Public Use
  Company Number: None

PATIENT
  Age: 64 Year
  Sex: Female
  Weight: 81.6475 kg

DRUGS (3)
  1. BONIVA [Suspect]
     Indication: OSTEOPOROSIS
     Dosage: 1 TABLET EVERY MONTH ORAL ONE DOSE ONLY
     Route: 048
     Dates: start: 20060829
  2. FLOVENT [Concomitant]
  3. CALCIUM GLUCONATE [Concomitant]

REACTIONS (6)
  - CONTUSION [None]
  - FALL [None]
  - LIMB INJURY [None]
  - PAIN IN EXTREMITY [None]
  - SCIATICA [None]
  - SKIN DISORDER [None]
